FAERS Safety Report 4709302-2 (Version None)
Quarter: 2005Q3

REPORT INFORMATION
  Report Type: 
  Country: None (occurrence: None)
  Receive Date: 20050708
  Receipt Date: 20050630
  Transmission Date: 20060218
  Serious: Yes (Hospitalization)
  Sender: FDA-Public Use
  Company Number: GB-BRISTOL-MYERS SQUIBB COMPANY-13024526

PATIENT
  Age: 61 Year
  Sex: Female

DRUGS (1)
  1. STARIL [Suspect]
     Dosage: DURATION = MANY YEARS
     Route: 048

REACTIONS (4)
  - BLOOD PRESSURE INCREASED [None]
  - EYE HAEMORRHAGE [None]
  - EYE PAIN [None]
  - RETINAL DISORDER [None]
